FAERS Safety Report 23663669 (Version 3)
Quarter: 2024Q2

REPORT INFORMATION
  Report Type: Spontaneous
  Country: US (occurrence: US)
  Receive Date: 20240322
  Receipt Date: 20240508
  Transmission Date: 20240716
  Serious: Yes (Other)
  Sender: FDA-Public Use
  Company Number: US-GSK-US2024AMR036123

PATIENT

DRUGS (1)
  1. BENLYSTA [Suspect]
     Active Substance: BELIMUMAB
     Indication: Systemic lupus erythematosus
     Dosage: UNK, MO
     Route: 042
     Dates: start: 202307

REACTIONS (5)
  - Systemic lupus erythematosus [Unknown]
  - Fatigue [Unknown]
  - Inflammation [Unknown]
  - Erythema [Unknown]
  - Therapeutic response unexpected [Unknown]
